FAERS Safety Report 9537679 (Version 2)
Quarter: 2014Q1

REPORT INFORMATION
  Report Type: Spontaneous
  Country: US (occurrence: US)
  Receive Date: 20130919
  Receipt Date: 20140121
  Transmission Date: 20141002
  Serious: Yes (Other)
  Sender: FDA-Public Use
  Company Number: CHPA2013US014093

PATIENT
  Age: 73 Year
  Sex: Female

DRUGS (1)
  1. MAALOX ANTACID BARRIER [Suspect]
     Indication: IMPAIRED GASTRIC EMPTYING
     Dosage: UNK, PRN
     Route: 048
     Dates: end: 2012

REACTIONS (8)
  - Parkinson^s disease [Not Recovered/Not Resolved]
  - Aphagia [Not Recovered/Not Resolved]
  - Urinary tract infection [Recovered/Resolved]
  - Gastrointestinal disorder [Recovered/Resolved]
  - Asthenia [Not Recovered/Not Resolved]
  - Weight decreased [Not Recovered/Not Resolved]
  - Off label use [Unknown]
  - Therapeutic response unexpected [Unknown]
